FAERS Safety Report 25247987 (Version 1)
Quarter: 2025Q2

REPORT INFORMATION
  Report Type: Spontaneous
  Country: US (occurrence: US)
  Receive Date: 20250429
  Receipt Date: 20250429
  Transmission Date: 20250717
  Serious: No
  Sender: ABBVIE
  Company Number: US-ABBVIE-6256224

PATIENT
  Sex: Female

DRUGS (4)
  1. HUMIRA [Suspect]
     Active Substance: ADALIMUMAB
     Indication: Hidradenitis
     Route: 058
  2. HUMIRA [Suspect]
     Active Substance: ADALIMUMAB
     Indication: Arthralgia
  3. HUMIRA [Suspect]
     Active Substance: ADALIMUMAB
     Indication: Back pain
  4. HUMIRA [Suspect]
     Active Substance: ADALIMUMAB
     Indication: Inflammation

REACTIONS (2)
  - Musculoskeletal stiffness [Unknown]
  - Back pain [Unknown]
